FAERS Safety Report 9558759 (Version 1)
Quarter: 2013Q3

REPORT INFORMATION
  Report Type: Spontaneous
  Country: US (occurrence: US)
  Receive Date: 20130926
  Receipt Date: 20130926
  Transmission Date: 20140515
  Serious: No
  Sender: FDA-Public Use
  Company Number: US-BIOGENIDEC-2013BI047152

PATIENT
  Age: 47 Year
  Sex: 0

DRUGS (15)
  1. TECFIDERA [Suspect]
     Indication: MULTIPLE SCLEROSIS
     Route: 048
     Dates: start: 20130425, end: 20130502
  2. TECFIDERA [Suspect]
     Indication: MULTIPLE SCLEROSIS
     Route: 048
     Dates: start: 20130502
  3. ENABLEX [Concomitant]
  4. NEURONTIN [Concomitant]
  5. IBUPROFEN [Concomitant]
  6. AMBIEN [Concomitant]
  7. KLONOPIN [Concomitant]
  8. BACLOFEN [Concomitant]
  9. DAVP [Concomitant]
  10. VITAMIN C [Concomitant]
  11. VITAMIN D2 [Concomitant]
  12. RISPERDAL [Concomitant]
  13. MECLIZINE [Concomitant]
  14. GNC MEGAMEN VITAMIN [Concomitant]
  15. PAXIL [Concomitant]

REACTIONS (3)
  - Vomiting [Recovered/Resolved]
  - Decreased appetite [Recovered/Resolved]
  - Weight decreased [Recovered/Resolved]
